FAERS Safety Report 7319635-1 (Version None)
Quarter: 2011Q1

REPORT INFORMATION
  Report Type: 
  Country: None (occurrence: None)
  Receive Date: 20110228
  Receipt Date: 20100617
  Transmission Date: 20110831
  Serious: Yes (Other)
  Sender: FDA-Public Use
  Company Number: A0866845A

PATIENT
  Sex: Female

DRUGS (2)
  1. LAMICTAL [Suspect]
     Dosage: 375MG TWICE PER DAY
     Route: 048
  2. BIRTH CONTROL [Concomitant]

REACTIONS (2)
  - DRUG LEVEL DECREASED [None]
  - CONVULSION [None]
